FAERS Safety Report 5646561-6 (Version None)
Quarter: 2008Q1

REPORT INFORMATION
  Report Type: 
  Country: None (occurrence: None)
  Receive Date: 20080227
  Receipt Date: 20080220
  Transmission Date: 20080703
  Serious: Yes (Other)
  Sender: FDA-Public Use
  Company Number: US-WYE-H02700308

PATIENT
  Sex: Female

DRUGS (6)
  1. CALTRATE 600 + VITAMIN D (CALCIUM CARBONATE/VITAMIN D, TABLET) [Suspect]
     Indication: NUTRITIONAL SUPPORT
     Dosage: 1 TABLET 2X PER 1 DAY , ORAL; BEGAN ^YEARS AGO^
     Route: 048
  2. ACTONEL [Suspect]
     Indication: DRUG USE FOR UNKNOWN INDICATION
  3. OSCAL (CALCIUM CARBONATE) [Concomitant]
  4. FOSAMAX [Concomitant]
  5. MILK OF MAGNESIA TAB [Concomitant]
  6. MULTIVITAMINS,  PLAIN (MULTIVITAMINS, PLAIN) [Concomitant]

REACTIONS (4)
  - BACK PAIN [None]
  - CONSTIPATION [None]
  - DYSPEPSIA [None]
  - URINARY TRACT OBSTRUCTION [None]
